FAERS Safety Report 4372572-7 (Version None)
Quarter: 2004Q2

REPORT INFORMATION
  Report Type: 
  Country: None (occurrence: None)
  Receive Date: 20040608
  Receipt Date: 20040527
  Transmission Date: 20050107
  Serious: Yes (Life-Threatening, Hospitalization)
  Sender: FDA-Public Use
  Company Number: JP-BRISTOL-MYERS SQUIBB COMPANY-12598744

PATIENT
  Age: 59 Year
  Sex: Female

DRUGS (4)
  1. PARAPLATIN [Suspect]
     Indication: SMALL CELL LUNG CANCER STAGE UNSPECIFIED
     Route: 042
     Dates: start: 20040524, end: 20040524
  2. TOPOTECIN [Concomitant]
     Route: 042
     Dates: start: 20040524, end: 20040524
  3. DECADRON [Concomitant]
     Dates: start: 20040524, end: 20040524
  4. KYTRIL [Concomitant]
     Route: 042
     Dates: start: 20040524, end: 20040524

REACTIONS (2)
  - CONVULSION [None]
  - DEPRESSED LEVEL OF CONSCIOUSNESS [None]
